FAERS Safety Report 24210317 (Version 2)
Quarter: 2025Q2

REPORT INFORMATION
  Report Type: Spontaneous
  Country: CN (occurrence: CN)
  Receive Date: 20240814
  Receipt Date: 20250608
  Transmission Date: 20250717
  Serious: Yes (Hospitalization)
  Sender: COHERUS
  Company Number: CN-SHANGHAI JUNSHI BIOSCIENCES CO., LTD.-CN2024010945

PATIENT

DRUGS (6)
  1. TORIPALIMAB [Suspect]
     Active Substance: TORIPALIMAB
     Indication: Brain neoplasm malignant
     Dosage: 240 MG, Q3WEEKS
     Route: 041
     Dates: start: 20240618, end: 20240618
  2. TORIPALIMAB [Suspect]
     Active Substance: TORIPALIMAB
     Route: 041
     Dates: start: 20240625, end: 20240625
  3. ETOPOSIDE [Suspect]
     Active Substance: ETOPOSIDE
     Indication: Brain neoplasm malignant
     Dosage: 150 MG, QD
     Dates: start: 20240618, end: 20240620
  4. ETOPOSIDE [Suspect]
     Active Substance: ETOPOSIDE
     Dosage: 150 MG (D1-D3, QD)
     Route: 041
     Dates: start: 20240625
  5. CISPLATIN [Suspect]
     Active Substance: CISPLATIN
     Indication: Brain neoplasm malignant
     Route: 041
     Dates: start: 20240618, end: 20240618
  6. CARBOPLATIN [Concomitant]
     Active Substance: CARBOPLATIN
     Indication: Brain neoplasm malignant
     Route: 041
     Dates: start: 20240625

REACTIONS (3)
  - White blood cell count decreased [Recovered/Resolved]
  - Granulocyte count decreased [Recovered/Resolved]
  - Off label use [Unknown]

NARRATIVE: CASE EVENT DATE: 20240618
